FAERS Safety Report 8742211 (Version 2)
Quarter: 2012Q4

REPORT INFORMATION
  Report Type: 
  Country: US (occurrence: US)
  Receive Date: 20120824
  Receipt Date: 20121109
  Transmission Date: 20130627
  Serious: Yes (Other)
  Sender: FDA-Public Use
  Company Number: US-BAYER-2012-085913

PATIENT
  Age: 42 Year
  Sex: Female
  Weight: 86.17 kg

DRUGS (1)
  1. OCELLA [Suspect]
     Indication: CONTRACEPTION
     Dosage: UNK
     Dates: start: 201009, end: 201201

REACTIONS (4)
  - Pulmonary embolism [None]
  - Pain in extremity [None]
  - Rash macular [None]
  - Skin disorder [None]
